FAERS Safety Report 6153059-8 (Version None)
Quarter: 2009Q2

REPORT INFORMATION
  Report Type: 
  Country: None (occurrence: None)
  Receive Date: 20090409
  Receipt Date: 20090325
  Transmission Date: 20091009
  Serious: Yes (Hospitalization, Other)
  Sender: FDA-Public Use
  Company Number: 2009S1005291

PATIENT
  Age: 61 Year
  Sex: Male

DRUGS (6)
  1. CIPROFLOXACIN [Suspect]
     Indication: INFECTION
     Dosage: 500 MG; TWICE A DAY ORAL
     Route: 048
     Dates: start: 20090113, end: 20090114
  2. ACETYLSALICYLIC ACID SRT [Concomitant]
  3. AMIODARONE (AMIODARONE) [Concomitant]
  4. BISOPROLOL FUMARATE [Concomitant]
  5. ERYTHROMYCIN [Concomitant]
  6. TRIMETHOPRIM [Concomitant]

REACTIONS (11)
  - ARTERIAL THROMBOSIS LIMB [None]
  - ATRIAL FIBRILLATION [None]
  - BACK PAIN [None]
  - CHEST PAIN [None]
  - DEAFNESS UNILATERAL [None]
  - DIZZINESS [None]
  - HEADACHE [None]
  - LIMB CRUSHING INJURY [None]
  - NECK PAIN [None]
  - PALPITATIONS [None]
  - TINNITUS [None]
